FAERS Safety Report 9945506 (Version 1)
Quarter: 2014Q1

REPORT INFORMATION
  Report Type: Report from Study
  Country: US (occurrence: US)
  Receive Date: 20140303
  Receipt Date: 20140303
  Transmission Date: 20141002
  Serious: No
  Sender: FDA-Public Use
  Company Number: US-ABBVIE-13P-163-1055534-00

PATIENT
  Age: 62 Year
  Sex: Female

DRUGS (8)
  1. HUMIRA [Suspect]
     Dosage: EVERY 3 WEEKS FOR 2 MONTHS
  2. SYNTHROID [Concomitant]
     Indication: PRODUCT USED FOR UNKNOWN INDICATION
     Dosage: 150 MG DAILY
  3. SIMVASTATIN [Concomitant]
     Indication: PRODUCT USED FOR UNKNOWN INDICATION
     Dosage: 20 MG DAILY
  4. ZOLOFT [Concomitant]
     Indication: PRODUCT USED FOR UNKNOWN INDICATION
     Dosage: 20 MG DAILY
  5. ALLEGRA 12 HOUR [Concomitant]
     Indication: PRODUCT USED FOR UNKNOWN INDICATION
     Dosage: 12 HOUR DAILY
  6. NAPROXYN [Concomitant]
     Indication: PRODUCT USED FOR UNKNOWN INDICATION
  7. SYMBICORT [Concomitant]
     Indication: PRODUCT USED FOR UNKNOWN INDICATION
     Dosage: INHALER AS NEEDED
     Route: 055
  8. HUMIRA [Suspect]
     Indication: PSORIATIC ARTHROPATHY
     Dates: start: 201002

REACTIONS (3)
  - Inappropriate schedule of drug administration [Not Recovered/Not Resolved]
  - Arthralgia [Not Recovered/Not Resolved]
  - Economic problem [Not Recovered/Not Resolved]
